FAERS Safety Report 6098737-4 (Version None)
Quarter: 2009Q1

REPORT INFORMATION
  Report Type: 
  Country: None (occurrence: None)
  Receive Date: 20090302
  Receipt Date: 20090218
  Transmission Date: 20090719
  Serious: Yes (Death)
  Sender: FDA-Public Use
  Company Number: JP-PFIZER INC-2009162441

PATIENT

DRUGS (12)
  1. RIFABUTIN [Suspect]
     Indication: MYCOBACTERIA TEST
     Dosage: 300 MG, 1X/DAY
     Route: 048
     Dates: start: 20081222, end: 20090109
  2. RIFAMPICIN [Concomitant]
     Dates: end: 20081221
  3. EBUTOL [Concomitant]
     Dosage: UNK
     Route: 048
     Dates: end: 20090109
  4. CLARITHROMYCIN [Concomitant]
     Dosage: UNK
     Route: 048
     Dates: end: 20090109
  5. CRAVIT [Concomitant]
     Dosage: UNK
     Route: 048
     Dates: end: 20090109
  6. BISOLVON [Concomitant]
     Dosage: UNK
     Route: 048
     Dates: end: 20090109
  7. DEPAS [Concomitant]
     Dosage: UNK
     Route: 048
     Dates: end: 20090109
  8. STREPTOMYCIN SULFATE [Concomitant]
     Dosage: UNK
     Route: 030
     Dates: end: 20090109
  9. DALACIN-S [Concomitant]
     Dosage: UNK
     Route: 042
     Dates: end: 20090106
  10. CIPROXAN [Concomitant]
     Dosage: UNK
     Route: 042
     Dates: end: 20081223
  11. AMINO ACIDS/CARBOHYDRATES/MINERALS/VITAMINS, [Concomitant]
     Dosage: UNK
     Route: 042
     Dates: end: 20081223
  12. MIRACLID [Concomitant]
     Dosage: UNK
     Route: 042
     Dates: end: 20081223

REACTIONS (1)
  - PNEUMONIA [None]
